FAERS Safety Report 7562643-6 (Version None)
Quarter: 2011Q2

REPORT INFORMATION
  Report Type: 
  Country: None (occurrence: None)
  Receive Date: 20110622
  Receipt Date: 20110608
  Transmission Date: 20111010
  Serious: Yes (Life-Threatening)
  Sender: FDA-Public Use
  Company Number: IT-PFIZER INC-2011133153

PATIENT

DRUGS (2)
  1. SUTENT [Suspect]
     Indication: RENAL CANCER
     Dosage: 50 MG, 1X/DAY
     Route: 048
     Dates: start: 20080908
  2. METFORMIN [Concomitant]
     Dosage: 500 UNK, 1X/DAY
     Route: 048
     Dates: start: 20060101

REACTIONS (1)
  - DEEP VEIN THROMBOSIS [None]
